FAERS Safety Report 5270535-0 (Version None)
Quarter: 2007Q1

REPORT INFORMATION
  Report Type: 
  Country: None (occurrence: None)
  Receive Date: 20070315
  Receipt Date: 20070301
  Transmission Date: 20070707
  Serious: No
  Sender: FDA-Public Use
  Company Number: TPA2007A00432

PATIENT
  Age: 83 Year
  Sex: Female

DRUGS (1)
  1. ROZEREM [Suspect]
     Indication: SLEEP DISORDER
     Dosage: 4 MG, PER ORAL
     Route: 048

REACTIONS (3)
  - DYSPEPSIA [None]
  - INSOMNIA [None]
  - UNDERDOSE [None]
